FAERS Safety Report 5704271-0 (Version None)
Quarter: 2008Q2

REPORT INFORMATION
  Report Type: 
  Country: None (occurrence: None)
  Receive Date: 20080414
  Receipt Date: 20080408
  Transmission Date: 20081010
  Serious: Yes (Death, Hospitalization)
  Sender: FDA-Public Use
  Company Number: FR-AVENTIS-200811277FR

PATIENT
  Age: 55 Year
  Sex: Female

DRUGS (6)
  1. FLAGYL [Suspect]
     Route: 042
     Dates: start: 20080227, end: 20080305
  2. CYTARABINE [Suspect]
     Route: 042
     Dates: start: 20080229, end: 20080304
  3. EVOLTRA [Suspect]
     Route: 042
     Dates: start: 20080301, end: 20080304
  4. VANCOMYCIN HCL [Suspect]
     Route: 042
     Dates: start: 20080223, end: 20080310
  5. IDARUBICINE [Concomitant]
     Dates: start: 20080201, end: 20080201
  6. ARACYTINE [Concomitant]
     Dates: start: 20080201, end: 20080201

REACTIONS (5)
  - BLISTER [None]
  - DERMATITIS EXFOLIATIVE [None]
  - RASH [None]
  - RENAL FAILURE ACUTE [None]
  - SHOCK [None]
